FAERS Safety Report 9234021 (Version 1)
Quarter: 2013Q2

REPORT INFORMATION
  Report Type: Spontaneous
  Country: FI (occurrence: FI)
  Receive Date: 20130416
  Receipt Date: 20130416
  Transmission Date: 20140414
  Serious: Yes (Hospitalization)
  Sender: FDA-Public Use
  Company Number: FI-AMGEN-FINSP2013013448

PATIENT
  Age: 77 Year
  Sex: Female

DRUGS (7)
  1. PROLIA [Suspect]
     Indication: PRODUCT USED FOR UNKNOWN INDICATION
     Dosage: UNK
  2. MAREVAN [Concomitant]
  3. ANTIHYPERTENSIVES [Concomitant]
  4. SOMAC [Concomitant]
  5. CALCIUM [Concomitant]
  6. VITAMIN D /00107901/ [Concomitant]
  7. ESTROGEN [Concomitant]

REACTIONS (5)
  - Musculoskeletal stiffness [Recovered/Resolved]
  - Gait disturbance [Unknown]
  - Incorrect storage of drug [Unknown]
  - Asthenia [Unknown]
  - Pain in extremity [Unknown]
